FAERS Safety Report 10516159 (Version 1)
Quarter: 2014Q3

REPORT INFORMATION
  Report Type: Spontaneous
  Country: US (occurrence: None)
  Receive Date: 20140926
  Receipt Date: 20140926
  Transmission Date: 20150326
  Serious: No
  Sender: FDA-Public Use
  Company Number: 1000069632

PATIENT
  Age: 54 Year
  Sex: Female

DRUGS (10)
  1. TRAZODONE [Concomitant]
     Active Substance: TRAZODONE HYDROCHLORIDE
  2. DILAUDID [Concomitant]
     Active Substance: HYDROMORPHONE HYDROCHLORIDE
  3. LINZESS [Suspect]
     Active Substance: LINACLOTIDE
     Indication: IRRITABLE BOWEL SYNDROME
     Dosage: 1 IN 1
     Route: 048
     Dates: start: 20140801
  4. SENOKOT (SENNA) (SENNA) [Concomitant]
  5. CLONAZEPAM (CLONAZEPAM) (CLONAZEPAM) [Concomitant]
     Active Substance: CLONAZEPAM
  6. GABAPENTIN (GABAPENTIN) (GABAPENTIN) [Concomitant]
     Active Substance: GABAPENTIN
  7. COLACE (DOCUSATE SODIUM) (DOCUSATE SODIUM) [Concomitant]
  8. TYLENOL (ACETAMINOPHEN) (ACETAMINOPHEN) [Concomitant]
  9. PROZAC [Concomitant]
     Active Substance: FLUOXETINE HYDROCHLORIDE
  10. METAMUCIL (PSYLLIUM) (PSYLLIUM) [Concomitant]

REACTIONS (1)
  - Abdominal distension [None]

NARRATIVE: CASE EVENT DATE: 201408
